FAERS Safety Report 10271756 (Version 1)
Quarter: 2014Q3

REPORT INFORMATION
  Report Type: Spontaneous
  Country: US (occurrence: US)
  Receive Date: 20140701
  Receipt Date: 20140701
  Transmission Date: 20150326
  Serious: No
  Sender: FDA-Public Use
  Company Number: -SAAVPROD-CERZ-1003062

PATIENT
  Age: 57 Year
  Sex: Male

DRUGS (3)
  1. IMIGLUCERASE [Suspect]
     Active Substance: IMIGLUCERASE
     Indication: GAUCHER^S DISEASE
     Dosage: 4800 U, Q2W  (5200 UNITS ONE DOSE THEN 2 WEEKS LATER RECEIVES 4800 UNITS) DOSE:4800 UNIT(S)
     Route: 042
     Dates: start: 2008
  2. IMIGLUCERASE [Suspect]
     Active Substance: IMIGLUCERASE
     Indication: GAUCHER^S DISEASE
     Dosage: 5200 U, Q2W (5200 UNITS ONE DOSE THEN 2 WEEKS LATER RECEIVES 4800 UNITS) DOSE:5200 UNIT(S)
     Route: 042
     Dates: start: 2008
  3. IMIGLUCERASE [Suspect]
     Active Substance: IMIGLUCERASE
     Indication: GAUCHER^S DISEASE
     Dosage: 10000 U, UNK (RECEIVED AS 1 DOSE) DOSE:10000 UNIT(S)
     Route: 042
     Dates: start: 20130605, end: 20130605

REACTIONS (2)
  - Dizziness [Recovered/Resolved]
  - Paraesthesia [Recovered/Resolved]

NARRATIVE: CASE EVENT DATE: 20130605
